FAERS Safety Report 20047782 (Version 2)
Quarter: 2021Q4

REPORT INFORMATION
  Report Type: Spontaneous
  Country: HU (occurrence: None)
  Receive Date: 20211109
  Receipt Date: 20211201
  Transmission Date: 20220303
  Serious: Yes (Other)
  Sender: FDA-Public Use
  Company Number: HU-ROCHE-2947668

PATIENT

DRUGS (2)
  1. ZELBORAF [Suspect]
     Active Substance: VEMURAFENIB
     Indication: Product used for unknown indication
     Route: 065
  2. COTELLIC [Suspect]
     Active Substance: COBIMETINIB
     Indication: Product used for unknown indication
     Route: 065

REACTIONS (5)
  - Necrosis [Unknown]
  - Staphylococcal infection [Unknown]
  - Pseudomonas infection [Unknown]
  - Escherichia infection [Unknown]
  - Eye disorder [Unknown]
